FAERS Safety Report 13109509 (Version 1)
Quarter: 2017Q1

REPORT INFORMATION
  Report Type: Spontaneous
  Country: JP (occurrence: JP)
  Receive Date: 20170112
  Receipt Date: 20170112
  Transmission Date: 20170428
  Serious: Yes (Death)
  Sender: FDA-Public Use
  Company Number: PHJP2017JP000635

PATIENT

DRUGS (2)
  1. SANDOSTATIN [Suspect]
     Active Substance: OCTREOTIDE ACETATE
     Indication: GASTROINTESTINAL OBSTRUCTION
     Dosage: 300 UG/DAY, (DILUTED WITH SALINE AT A TOTAL DOSE OF 60 ML [DOSAGE FOR 5 DAYS])
     Route: 058
  2. OXIFAST [Concomitant]
     Active Substance: OXYCODONE
     Indication: PRODUCT USED FOR UNKNOWN INDICATION
     Dosage: 600 MG, UNK
     Route: 065

REACTIONS (1)
  - Colon cancer [Fatal]
